FAERS Safety Report 10642639 (Version 1)
Quarter: 2014Q4

REPORT INFORMATION
  Report Type: Spontaneous
  Country: US (occurrence: None)
  Receive Date: 20141209
  Receipt Date: 20141209
  Transmission Date: 20150529
  Serious: Yes (Hospitalization, Disabling)
  Sender: FDA-Public Use
  Company Number: None

PATIENT
  Age: 28 Year
  Sex: Female
  Weight: 67.13 kg

DRUGS (1)
  1. LARIAM [Suspect]
     Active Substance: MEFLOQUINE HYDROCHLORIDE
     Indication: MALARIA PROPHYLAXIS
     Route: 048
     Dates: start: 20131005, end: 20141026

REACTIONS (18)
  - Fatigue [None]
  - Nystagmus [None]
  - Anxiety [None]
  - Insomnia [None]
  - Loss of consciousness [None]
  - Depression [None]
  - Malaise [None]
  - Thrombocytopenia [None]
  - Migraine [None]
  - Feeling abnormal [None]
  - Dizziness [None]
  - Tremor [None]
  - Hypoaesthesia [None]
  - Tachycardia [None]
  - Dry mouth [None]
  - Pain [None]
  - Rash [None]
  - Disturbance in attention [None]

NARRATIVE: CASE EVENT DATE: 20131005
